FAERS Safety Report 7450310-9 (Version None)
Quarter: 2011Q2

REPORT INFORMATION
  Report Type: 
  Country: None (occurrence: None)
  Receive Date: 20110422
  Receipt Date: 20110412
  Transmission Date: 20111010
  Serious: Yes (Hospitalization)
  Sender: FDA-Public Use
  Company Number: LEO-2011-00337

PATIENT
  Age: 63 Year
  Sex: Male

DRUGS (2)
  1. INNOHEP [Suspect]
     Indication: DEEP VEIN THROMBOSIS
     Dosage: 18000 IU, SUBCUTANEOUS ; 22500 IU, SUBCUTANEOUS
     Route: 058
     Dates: start: 20110301
  2. INNOHEP [Suspect]
     Indication: DEEP VEIN THROMBOSIS
     Dosage: 18000 IU, SUBCUTANEOUS ; 22500 IU, SUBCUTANEOUS
     Route: 058
     Dates: start: 20110403

REACTIONS (2)
  - OVERDOSE [None]
  - PULMONARY EMBOLISM [None]
